FAERS Safety Report 24134517 (Version 9)
Quarter: 2024Q4

REPORT INFORMATION
  Report Type: Spontaneous
  Country: US (occurrence: US)
  Receive Date: 20240725
  Receipt Date: 20241009
  Transmission Date: 20250114
  Serious: No
  Sender: ELI LILLY AND CO
  Company Number: US-ELI_LILLY_AND_COMPANY-US202407015850

PATIENT
  Age: 65 Year
  Sex: Female

DRUGS (11)
  1. ADCIRCA [Suspect]
     Active Substance: TADALAFIL
     Indication: Pulmonary arterial hypertension
     Dosage: 40 MG, DAILY
     Route: 048
     Dates: start: 202104
  2. ORENITRAM [Suspect]
     Active Substance: TREPROSTINIL
     Indication: Pulmonary arterial hypertension
     Dosage: 2 MG, TID (4.5MG TID, TAKING 2-1MG AND 1-2.5MG TABLETS)
     Route: 048
     Dates: start: 202104
  3. ORENITRAM [Suspect]
     Active Substance: TREPROSTINIL
     Dosage: 2.5 MG, TID (4.5MG TID, TAKING 2-1MG AND 1-2.5MG TABLETS)
     Route: 048
     Dates: start: 202104
  4. ORENITRAM [Suspect]
     Active Substance: TREPROSTINIL
     Dosage: 3.5 MG, TID (1-2.5 MG + 1-1 MG TABLETS)
     Route: 048
  5. ORENITRAM [Suspect]
     Active Substance: TREPROSTINIL
     Dosage: UNK UNK, UNKNOWN
     Route: 065
  6. TREPROSTINIL [Suspect]
     Active Substance: TREPROSTINIL
     Indication: Pulmonary arterial hypertension
     Dosage: 13.55 NG/KG/MIN, CONTINUOUS
     Route: 058
     Dates: start: 202406
  7. TREPROSTINIL [Suspect]
     Active Substance: TREPROSTINIL
     Dosage: 17.49 NG/KG/MIN, CONTINUOUS
     Route: 058
     Dates: start: 202406
  8. TREPROSTINIL [Suspect]
     Active Substance: TREPROSTINIL
     Dosage: 29.73 NG/KG/MIN, CONTINUOUS
     Route: 058
     Dates: start: 202406
  9. TREPROSTINIL [Suspect]
     Active Substance: TREPROSTINIL
     Dosage: 33.23 NG/KG/MIN, CONTINUOUS
     Route: 058
     Dates: start: 202406
  10. OPSUMIT [Concomitant]
     Active Substance: MACITENTAN
     Indication: Product used for unknown indication
     Dosage: UNK, UNKNOWN
     Route: 065
  11. REMODULIN [Concomitant]
     Active Substance: TREPROSTINIL
     Indication: Product used for unknown indication
     Dosage: UNK, UNKNOWN
     Route: 065
     Dates: start: 202406

REACTIONS (12)
  - Application site pain [Not Recovered/Not Resolved]
  - Application site swelling [Unknown]
  - Hyperaesthesia [Unknown]
  - Constipation [Unknown]
  - Pain [Recovering/Resolving]
  - Diarrhoea [Recovered/Resolved]
  - Pain in extremity [Unknown]
  - Headache [Not Recovered/Not Resolved]
  - Dizziness [Not Recovered/Not Resolved]
  - Nausea [Unknown]
  - Heart rate increased [Unknown]
  - Tachycardia [Not Recovered/Not Resolved]
